FAERS Safety Report 8020484-X (Version None)
Quarter: 2012Q1

REPORT INFORMATION
  Report Type: 
  Country: None (occurrence: None)
  Receive Date: 20120103
  Receipt Date: 20120103
  Transmission Date: 20120608
  Serious: Yes (Hospitalization)
  Sender: FDA-Public Use
  Company Number: FR-AMGEN-FRASP2012000046

PATIENT
  Age: 34 Year
  Sex: Female

DRUGS (9)
  1. CALTRATE                           /00751519/ [Concomitant]
     Dosage: 600 MG, BID
     Route: 048
  2. PREDNISONE TAB [Concomitant]
     Dosage: 20 MG, UNK
     Route: 048
  3. SPECIAFOLDINE [Concomitant]
     Dosage: 1 DF, QD
     Route: 048
  4. IRBESARTAN [Concomitant]
     Dosage: 75 MG, QD
     Route: 048
  5. FOSAMAX [Concomitant]
     Dosage: 70 MG, QWK
     Route: 048
  6. UVEDOSE [Concomitant]
     Dosage: 100000 IU, QMO
     Route: 048
  7. SPORANOX [Concomitant]
     Dosage: 100 MG, BID
     Route: 048
  8. NPLATE [Suspect]
     Indication: THROMBOCYTOPENIA
     Dosage: 500 MUG, QWK
     Route: 058
     Dates: start: 20101117
  9. BACTRIM [Concomitant]
     Dosage: 1 DF, UNK
     Route: 048

REACTIONS (1)
  - LEUKOCYTOSIS [None]
